FAERS Safety Report 4699741-0 (Version None)
Quarter: 2005Q2

REPORT INFORMATION
  Report Type: 
  Country: None (occurrence: None)
  Receive Date: 20050623
  Receipt Date: 20050614
  Transmission Date: 20051028
  Serious: Yes (Other)
  Sender: FDA-Public Use
  Company Number: 2005-02-0175

PATIENT
  Age: 71 Year
  Sex: Female
  Weight: 75 kg

DRUGS (11)
  1. INTRON A [Suspect]
     Indication: HEPATITIS C
     Dosage: SEE IMAGE
     Route: 030
     Dates: start: 20040908, end: 20040921
  2. INTRON A [Suspect]
     Indication: HEPATITIS C
     Dosage: SEE IMAGE
     Route: 030
     Dates: start: 20040222, end: 20050202
  3. INTRON A [Suspect]
     Indication: HEPATITIS C
     Dosage: SEE IMAGE
     Route: 030
     Dates: start: 20040908, end: 20050202
  4. OMEPRAL (OMEPRAZOLE) TABLETS [Concomitant]
  5. PANALDINE TABLETS [Concomitant]
  6. JUVELA NICOTINATE CAPSULES [Concomitant]
  7. EXCELASE CAPSULES [Concomitant]
  8. NORVASC [Concomitant]
  9. CEROCRAL TABLETS [Concomitant]
  10. DEPAS TABLETS [Concomitant]
  11. PROMAC (POLAPREZINC) [Concomitant]

REACTIONS (1)
  - IVTH NERVE PARALYSIS [None]
